FAERS Safety Report 4327795-X (Version None)
Quarter: 2004Q1

REPORT INFORMATION
  Report Type: 
  Country: None (occurrence: None)
  Receive Date: 20040325
  Receipt Date: 20040311
  Transmission Date: 20041129
  Serious: Yes (Other)
  Sender: FDA-Public Use
  Company Number: 2003-BP-10515BP

PATIENT
  Sex: Female

DRUGS (1)
  1. COMBIVENT [Suspect]
     Indication: CHRONIC OBSTRUCTIVE AIRWAYS DISEASE
     Dosage: 8 PUF (SEE TEXT, 2 PUFFS QID),IH
     Route: 055
     Dates: start: 20020301, end: 20020501

REACTIONS (3)
  - BREAST CANCER [None]
  - DYSPNOEA [None]
  - SPEECH DISORDER [None]
